FAERS Safety Report 15618772 (Version 1)
Quarter: 2018Q4

REPORT INFORMATION
  Report Type: Spontaneous
  Country: US (occurrence: US)
  Receive Date: 20181114
  Receipt Date: 20181114
  Transmission Date: 20190205
  Serious: Yes (Other)
  Sender: FDA-Public Use
  Company Number: None

PATIENT
  Age: 57 Year
  Sex: Female
  Weight: 42.66 kg

DRUGS (8)
  1. PROCHLORPERAZINE. [Concomitant]
     Active Substance: PROCHLORPERAZINE
  2. RANITIDINE. [Concomitant]
     Active Substance: RANITIDINE
  3. CAPECITABINE. [Suspect]
     Active Substance: CAPECITABINE
     Indication: COLON CANCER
     Route: 048
     Dates: start: 20180913
  4. VITAMIN C [Concomitant]
     Active Substance: ASCORBIC ACID
  5. NORCO [Concomitant]
     Active Substance: ACETAMINOPHEN\HYDROCODONE BITARTRATE
  6. CAPECITABINE. [Suspect]
     Active Substance: CAPECITABINE
     Indication: COLON CANCER
     Route: 048
     Dates: start: 20180913
  7. APAP [Concomitant]
     Active Substance: ACETAMINOPHEN
  8. VIT. D [Concomitant]

REACTIONS (2)
  - Malaise [None]
  - Fatigue [None]

NARRATIVE: CASE EVENT DATE: 20181114
